FAERS Safety Report 8076245-9 (Version None)
Quarter: 2012Q1

REPORT INFORMATION
  Report Type: 
  Country: None (occurrence: None)
  Receive Date: 20120127
  Receipt Date: 20120118
  Transmission Date: 20120608
  Serious: Yes (Other)
  Sender: FDA-Public Use
  Company Number: JP-ROCHE-1007437

PATIENT
  Sex: Male
  Weight: 53 kg

DRUGS (14)
  1. OXAROL [Concomitant]
     Indication: HYPERPARATHYROIDISM SECONDARY
     Route: 042
     Dates: start: 20101022
  2. VERAPAMIL HCL [Concomitant]
     Indication: ANGINA PECTORIS
     Route: 048
     Dates: start: 20041020
  3. MICARDIS [Concomitant]
     Indication: HYPERTENSION
     Route: 048
     Dates: start: 20101231, end: 20111001
  4. MICARDIS [Concomitant]
     Route: 048
     Dates: start: 20111008
  5. ADALAT [Concomitant]
     Indication: HYPERTENSION
     Route: 048
     Dates: start: 20081107
  6. LANSOPRAZOLE [Concomitant]
     Indication: GASTROOESOPHAGEAL REFLUX DISEASE
     Route: 048
     Dates: start: 20090408
  7. ZOLPIDEM [Concomitant]
     Indication: INSOMNIA
     Route: 048
     Dates: start: 20090313
  8. MIRCERA [Suspect]
     Indication: NEPHROGENIC ANAEMIA
     Route: 042
     Dates: start: 20110809, end: 20110913
  9. CALCIUM CARBONATE [Concomitant]
     Indication: HYPERPHOSPHATAEMIA
     Route: 048
     Dates: start: 20100427
  10. CANDESARTAN CILEXETIL [Concomitant]
     Indication: HYPERTENSION
     Route: 048
     Dates: start: 20110618
  11. HYPOCA [Concomitant]
     Indication: HYPERTENSION
     Route: 048
     Dates: start: 20100625
  12. CARVEDILOL [Concomitant]
     Indication: ANGINA PECTORIS
     Route: 048
     Dates: start: 20060630
  13. SELBEX [Concomitant]
     Indication: GASTRITIS
     Route: 048
     Dates: start: 20081201
  14. FOSRENOL [Concomitant]
     Indication: HYPERPHOSPHATAEMIA
     Route: 048
     Dates: start: 20100326

REACTIONS (7)
  - GASTROINTESTINAL HAEMORRHAGE [None]
  - DIZZINESS [None]
  - MYOCARDIAL ISCHAEMIA [None]
  - PALPITATIONS [None]
  - HAEMOGLOBIN DECREASED [None]
  - CARDIOMEGALY [None]
  - PULSE ABNORMAL [None]
